FAERS Safety Report 23214993 (Version 1)
Quarter: 2023Q4

REPORT INFORMATION
  Report Type: Report from Study
  Country: ES (occurrence: ES)
  Receive Date: 20231122
  Receipt Date: 20231122
  Transmission Date: 20240110
  Serious: Yes (Hospitalization)
  Sender: FDA-Public Use
  Company Number: None

PATIENT
  Age: 66 Year
  Sex: Male

DRUGS (2)
  1. EZETIMIBE\ROSUVASTATIN CALCIUM [Suspect]
     Active Substance: EZETIMIBE\ROSUVASTATIN CALCIUM
     Indication: Dyslipidaemia
     Dosage: 20 MG/10 MG,30 TABLETS, THERAPY END DATE: NASK, FREQUENCY TIME:1 DAYS
     Dates: start: 20230428
  2. RAMIPRIL [Suspect]
     Active Substance: RAMIPRIL
     Indication: Chronic coronary syndrome
     Dosage: UNIT DOSE:2.5MG,FREQUENCY TIME:1 DAYS, THERAPY END DATE:NASK
     Dates: start: 20230428

REACTIONS (1)
  - Pancreatitis acute [Recovered/Resolved]

NARRATIVE: CASE EVENT DATE: 20230727
